FAERS Safety Report 6690512-2 (Version None)
Quarter: 2010Q2

REPORT INFORMATION
  Report Type: 
  Country: None (occurrence: None)
  Receive Date: 20100421
  Receipt Date: 20100413
  Transmission Date: 20101027
  Serious: Yes (Hospitalization)
  Sender: FDA-Public Use
  Company Number: JP-MERCK-1004USA00536

PATIENT
  Age: 73 Year
  Sex: Female

DRUGS (11)
  1. FOSAMAX [Suspect]
     Indication: OSTEOPOROSIS
     Route: 048
     Dates: start: 20070701, end: 20090831
  2. PREDNISOLONE [Suspect]
     Indication: INTERSTITIAL LUNG DISEASE
     Route: 048
  3. PREDNISOLONE [Suspect]
     Route: 048
  4. NORVASC [Concomitant]
     Indication: HYPERTENSION
     Route: 048
  5. CANDESARTAN CILEXETIL [Concomitant]
     Indication: HYPERTENSION
     Route: 048
  6. IMURAN [Concomitant]
     Indication: CREST SYNDROME
     Route: 048
  7. ARICEPT [Concomitant]
     Indication: DEMENTIA
     Route: 048
  8. LANSOPRAZOLE [Concomitant]
     Indication: GASTRIC ULCER
     Route: 048
  9. MAGNESIUM OXIDE [Concomitant]
     Indication: GASTROINTESTINAL HYPOMOTILITY
     Route: 048
  10. PANTOSIN [Concomitant]
     Indication: GASTROINTESTINAL HYPOMOTILITY
     Route: 048
  11. ENSURE [Concomitant]
     Indication: GASTROINTESTINAL HYPOMOTILITY
     Route: 048

REACTIONS (1)
  - OSTEOMYELITIS [None]
